FAERS Safety Report 6130968-7 (Version None)
Quarter: 2009Q1

REPORT INFORMATION
  Report Type: 
  Country: None (occurrence: None)
  Receive Date: 20090325
  Receipt Date: 20090310
  Transmission Date: 20090719
  Serious: Yes (Death, Other)
  Sender: FDA-Public Use
  Company Number: EC-PFIZER INC-2006071134

PATIENT

DRUGS (5)
  1. PREGABALIN [Suspect]
     Indication: SCIATICA
     Route: 048
     Dates: start: 20060517, end: 20060518
  2. PREGABALIN [Suspect]
     Indication: NEUROPATHY PERIPHERAL
  3. NITROGLYCERIN [Concomitant]
     Route: 062
  4. GLUCOVANCE [Concomitant]
     Route: 048
  5. ATORVASTATIN [Concomitant]
     Route: 048

REACTIONS (3)
  - ANURIA [None]
  - CARDIAC ARREST [None]
  - OEDEMA [None]
